FAERS Safety Report 14895179 (Version 2)
Quarter: 2019Q1

REPORT INFORMATION
  Report Type: Spontaneous
  Country: US (occurrence: US)
  Receive Date: 20180515
  Receipt Date: 20190325
  Transmission Date: 20190417
  Serious: No
  Sender: FDA-Public Use
  Company Number: US-PFIZER INC-2017184061

PATIENT
  Age: 8 Year
  Sex: Female

DRUGS (2)
  1. GENOTROPIN [Suspect]
     Active Substance: SOMATROPIN
     Dosage: 1.2 MG, DAILY
     Dates: start: 20170623
  2. GENOTROPIN [Suspect]
     Active Substance: SOMATROPIN
     Dosage: 0.96 MG, DAILY (7X A WEEK)

REACTIONS (6)
  - Puberty [Unknown]
  - Product prescribing error [Unknown]
  - Product dose omission [Unknown]
  - Arthralgia [Unknown]
  - Injection site extravasation [Unknown]
  - Wrong technique in product usage process [Unknown]
